FAERS Safety Report 6249005-9 (Version None)
Quarter: 2009Q2

REPORT INFORMATION
  Report Type: 
  Country: None (occurrence: None)
  Receive Date: 20090624
  Receipt Date: 20090624
  Transmission Date: 20091009
  Serious: Yes (Other)
  Sender: FDA-Public Use
  Company Number: None

PATIENT
  Age: 53 Year
  Sex: Male
  Weight: 154.223 kg

DRUGS (1)
  1. REQUIP XL [Suspect]
     Indication: PARKINSON'S DISEASE
     Dosage: 24 MG 1X PO
     Route: 048
     Dates: start: 20080415, end: 20090619

REACTIONS (4)
  - ABNORMAL BEHAVIOUR [None]
  - ECONOMIC PROBLEM [None]
  - GAMBLING [None]
  - IMPULSE-CONTROL DISORDER [None]
